FAERS Safety Report 22278561 (Version 5)
Quarter: 2023Q4

REPORT INFORMATION
  Report Type: Spontaneous
  Country: US (occurrence: US)
  Receive Date: 20230503
  Receipt Date: 20231120
  Transmission Date: 20240109
  Serious: Yes (Other)
  Sender: FDA-Public Use
  Company Number: US-BAYER-2023A058724

PATIENT
  Age: 23 Year
  Sex: Male
  Weight: 77.098 kg

DRUGS (4)
  1. KOVALTRY [Suspect]
     Active Substance: ANTIHEMOPHILIC FACTOR, HUMAN RECOMBINANT
     Indication: Factor VIII deficiency
     Dosage: 4000 IU, QOD
     Route: 042
     Dates: start: 202301
  2. KOVALTRY [Suspect]
     Active Substance: ANTIHEMOPHILIC FACTOR, HUMAN RECOMBINANT
     Indication: Factor VIII deficiency
     Dosage: 1000 IU, QOD
     Route: 042
     Dates: start: 202302
  3. KOVALTRY [Suspect]
     Active Substance: ANTIHEMOPHILIC FACTOR, HUMAN RECOMBINANT
     Indication: Factor VIII deficiency
     Dosage: 3000 IU, QOD
     Route: 042
     Dates: start: 202302
  4. JIVI [Suspect]
     Active Substance: DAMOCTOCOG ALFA PEGOL
     Indication: Factor VIII deficiency
     Dosage: 3200 IU, EVERY 48 HOURS
     Route: 042
     Dates: start: 202307

REACTIONS (3)
  - Haemorrhage [Recovered/Resolved]
  - Pain [None]
  - Weight decreased [None]

NARRATIVE: CASE EVENT DATE: 20230701
